FAERS Safety Report 8622576-0 (Version None)
Quarter: 2012Q3

REPORT INFORMATION
  Report Type: 
  Country: None (occurrence: None)
  Receive Date: 20120809
  Receipt Date: 20120730
  Transmission Date: 20120928
  Serious: Yes (Other)
  Sender: FDA-Public Use
  Company Number: 2012GMK002256

PATIENT
  Age: 18 Month
  Sex: Female

DRUGS (1)
  1. OXCARBAZEPINE [Suspect]
     Indication: PRODUCT USED FOR UNKNOWN INDICATION
     Dosage: 14 MG/KG, QD

REACTIONS (2)
  - DEVELOPMENTAL DELAY [None]
  - INFANTILE SPASMS [None]
